FAERS Safety Report 6557626-9 (Version None)
Quarter: 2010Q1

REPORT INFORMATION
  Report Type: 
  Country: None (occurrence: None)
  Receive Date: 20100126
  Receipt Date: 20090910
  Transmission Date: 20100710
  Serious: Yes (Hospitalization)
  Sender: FDA-Public Use
  Company Number: LMI-2009-00238

PATIENT
  Age: 74 Year
  Sex: Male
  Weight: 81.6475 kg

DRUGS (7)
  1. DEFINITY [Suspect]
     Indication: CHEST PAIN
     Dosage: 1.3 ML OF DEFINITY DILUTED IN 8.7 ML OF NS (2ML) INTRAVENOUS BOLUS
     Route: 040
     Dates: start: 20090910, end: 20090910
  2. DEFINITY [Suspect]
     Indication: STRESS ECHOCARDIOGRAM
     Dosage: 1.3 ML OF DEFINITY DILUTED IN 8.7 ML OF NS (2ML) INTRAVENOUS BOLUS
     Route: 040
     Dates: start: 20090910, end: 20090910
  3. HYZAAR [Concomitant]
  4. TOPROL-XL [Concomitant]
  5. FLOMAX (MORNIFLUMATE) [Concomitant]
  6. PLAVIX [Concomitant]
  7. PROTONIX [Concomitant]

REACTIONS (3)
  - ANGINA PECTORIS [None]
  - BACK PAIN [None]
  - NAUSEA [None]
